FAERS Safety Report 19449353 (Version 1)
Quarter: 2021Q2

REPORT INFORMATION
  Report Type: Spontaneous
  Country: US (occurrence: GB)
  Receive Date: 20210622
  Receipt Date: 20210622
  Transmission Date: 20210717
  Serious: Yes (Other)
  Sender: FDA-Public Use
  Company Number: GB-BRECKENRIDGE PHARMACEUTICAL, INC.-2112995

PATIENT
  Age: 83 Year
  Sex: Male

DRUGS (2)
  1. CLOPIDOGREL [Interacting]
     Active Substance: CLOPIDOGREL BISULFATE
  2. OMEPRAZOLE. [Suspect]
     Active Substance: OMEPRAZOLE

REACTIONS (1)
  - Ischaemic stroke [Unknown]
